FAERS Safety Report 7572205-2 (Version None)
Quarter: 2011Q2

REPORT INFORMATION
  Report Type: 
  Country: None (occurrence: None)
  Receive Date: 20110624
  Receipt Date: 20110613
  Transmission Date: 20111010
  Serious: Yes (Other)
  Sender: FDA-Public Use
  Company Number: PHHY2011US52036

PATIENT
  Sex: Male

DRUGS (3)
  1. FLONASE [Concomitant]
  2. DIOVAN [Suspect]
     Dosage: 1 DF, QD
  3. ALBUTEROL SULFATE AUTOHALER [Concomitant]

REACTIONS (2)
  - CONVULSION [None]
  - COUGH [None]
